FAERS Safety Report 22305696 (Version 1)
Quarter: 2023Q2

REPORT INFORMATION
  Report Type: Spontaneous
  Country: DE (occurrence: None)
  Receive Date: 20230510
  Receipt Date: 20230510
  Transmission Date: 20230721
  Serious: Yes (Other)
  Sender: FDA-Public Use
  Company Number: CH-ROCHE-3304438

PATIENT
  Age: 83 Year
  Sex: Female

DRUGS (2)
  1. HERCEPTIN [Suspect]
     Active Substance: TRASTUZUMAB
     Indication: Breast cancer
     Dosage: APPLICATION ON 14/FEB AND 07/MAR/2023.
     Route: 058
     Dates: start: 20230214, end: 20230214
  2. HERCEPTIN [Suspect]
     Active Substance: TRASTUZUMAB
     Route: 058
     Dates: start: 20230307, end: 20230307

REACTIONS (5)
  - Chills [Unknown]
  - Circulatory collapse [Unknown]
  - Fatigue [Unknown]
  - Listless [Unknown]
  - Malaise [Unknown]

NARRATIVE: CASE EVENT DATE: 20230214
